FAERS Safety Report 4338905-2 (Version None)
Quarter: 2004Q2

REPORT INFORMATION
  Report Type: 
  Country: None (occurrence: None)
  Receive Date: 20040409
  Receipt Date: 20040329
  Transmission Date: 20050107
  Serious: Yes (Other)
  Sender: FDA-Public Use
  Company Number: 2003187589IE

PATIENT
  Age: 58 Year
  Sex: Male
  Weight: 98.7 kg

DRUGS (5)
  1. GENOTROPIN [Suspect]
     Indication: HYPOPITUITARISM
     Dosage: 0.4 MG, QD
     Dates: start: 20010921
  2. LEVOTHYROXINE SODIUM [Concomitant]
  3. HYDROCORTISONE [Concomitant]
  4. TESTOSTERONE [Concomitant]
  5. SUSTANON (TESTOSTERONE ISOCAPROATE, TESTOSTERONE CAPRINOYLACETATE, TES [Concomitant]

REACTIONS (3)
  - BLOOD GLUCOSE INCREASED [None]
  - HYPERTENSION [None]
  - WEIGHT INCREASED [None]
